FAERS Safety Report 24827681 (Version 1)
Quarter: 2025Q1

REPORT INFORMATION
  Report Type: Spontaneous
  Country: AU (occurrence: AU)
  Receive Date: 20250109
  Receipt Date: 20250109
  Transmission Date: 20250408
  Serious: No
  Sender: JAZZ
  Company Number: AU-PHARMAMAR-2024PM000717

PATIENT
  Age: 75 Year
  Sex: Female
  Weight: 63 kg

DRUGS (1)
  1. LURBINECTEDIN [Suspect]
     Active Substance: LURBINECTEDIN
     Indication: Small cell carcinoma
     Route: 042
     Dates: start: 20240905

REACTIONS (2)
  - Fatigue [Recovering/Resolving]
  - Therapy change [Unknown]

NARRATIVE: CASE EVENT DATE: 20240601
